FAERS Safety Report 16088325 (Version 1)
Quarter: 2019Q1

REPORT INFORMATION
  Report Type: Spontaneous
  Country: US (occurrence: US)
  Receive Date: 20190319
  Receipt Date: 20190319
  Transmission Date: 20190418
  Serious: Yes (Other)
  Sender: FDA-Public Use
  Company Number: US-ELI_LILLY_AND_COMPANY-US201903006273

PATIENT
  Sex: Female

DRUGS (2)
  1. IBRANCE [Suspect]
     Active Substance: PALBOCICLIB
     Indication: BREAST CANCER
     Dosage: 100 MG, CYCLICAL, 1 CAP DAILY FOR 21 DAYS
     Route: 048
     Dates: start: 20161103
  2. VERZENIO [Suspect]
     Active Substance: ABEMACICLIB
     Indication: PRODUCT USED FOR UNKNOWN INDICATION
     Dosage: UNK UNK, UNKNOWN
     Route: 065

REACTIONS (7)
  - Toxicity to various agents [Unknown]
  - Diarrhoea [Unknown]
  - Asthenia [Unknown]
  - White blood cell count decreased [Unknown]
  - Headache [Unknown]
  - Nausea [Unknown]
  - Pulmonary mass [Unknown]
